FAERS Safety Report 18009376 (Version 3)
Quarter: 2020Q4

REPORT INFORMATION
  Report Type: Spontaneous
  Country: US (occurrence: US)
  Receive Date: 20200710
  Receipt Date: 20201026
  Transmission Date: 20210113
  Serious: No
  Sender: FDA-Public Use
  Company Number: US-LEXICON PHARMACEUTICALS, INC-20-1606-00519

PATIENT
  Age: 62 Year
  Sex: Female

DRUGS (19)
  1. METOPROLOL TARTRATE. [Concomitant]
     Active Substance: METOPROLOL TARTRATE
  2. SCOPOLAMINE [Concomitant]
     Active Substance: SCOPOLAMINE
  3. SANDOSTATIN [Concomitant]
     Active Substance: OCTREOTIDE ACETATE
  4. HYDROCORTISONE. [Concomitant]
     Active Substance: HYDROCORTISONE
  5. VITAMIN D [Concomitant]
     Active Substance: VITAMIN D NOS
  6. CLONAZEPAM. [Concomitant]
     Active Substance: CLONAZEPAM
  7. ASPIRIN. [Concomitant]
     Active Substance: ASPIRIN
  8. METHYLPREDNISOLONE. [Concomitant]
     Active Substance: METHYLPREDNISOLONE
  9. ROPINIROLE HCL [Concomitant]
     Active Substance: ROPINIROLE HYDROCHLORIDE
  10. FAMOTIDINE. [Concomitant]
     Active Substance: FAMOTIDINE
  11. CELECOXIB. [Concomitant]
     Active Substance: CELECOXIB
  12. SUMATRIPTAN. [Concomitant]
     Active Substance: SUMATRIPTAN
  13. ATORVASTATIN [Concomitant]
     Active Substance: ATORVASTATIN
  14. BUPROPION. [Concomitant]
     Active Substance: BUPROPION
  15. POTASSIUM [Concomitant]
     Active Substance: POTASSIUM
  16. HYOSCYAMINE. [Concomitant]
     Active Substance: HYOSCYAMINE
  17. CITALOPRAM [Concomitant]
     Active Substance: CITALOPRAM HYDROBROMIDE
  18. XERMELO [Suspect]
     Active Substance: TELOTRISTAT ETHYL
     Indication: CARCINOID SYNDROME
     Dates: start: 20200613
  19. ZOLPIDEM [Concomitant]
     Active Substance: ZOLPIDEM TARTRATE

REACTIONS (1)
  - Change of bowel habit [Recovered/Resolved]
